FAERS Safety Report 10246619 (Version 1)
Quarter: 2014Q2

REPORT INFORMATION
  Report Type: Spontaneous
  Country: GB (occurrence: GB)
  Receive Date: 20140619
  Receipt Date: 20140619
  Transmission Date: 20141212
  Serious: Yes (Life-Threatening, Hospitalization, Disabling)
  Sender: FDA-Public Use
  Company Number: GB-MYLANLABS-2014S1013699

PATIENT
  Age: 74 Year
  Sex: Female
  Weight: 60.77 kg

DRUGS (8)
  1. CLOPIDOGREL [Suspect]
     Indication: ATRIAL FIBRILLATION
     Route: 048
     Dates: start: 20070201, end: 20130909
  2. AMITRIPTYLINE HYDROCHLORIDE [Concomitant]
  3. APIXABAN [Concomitant]
  4. CARBOCISTEINE [Concomitant]
  5. LEVOTHYROXINE SODIUM [Concomitant]
  6. PREGABALIN [Concomitant]
  7. PROPAFENONE HYDROCHLORIDE [Concomitant]
  8. ZOPICLONE [Concomitant]

REACTIONS (4)
  - Spinal cord haemorrhage [Not Recovered/Not Resolved]
  - Quadriplegia [Not Recovered/Not Resolved]
  - Neck pain [Unknown]
  - Back pain [Unknown]
